FAERS Safety Report 7902921-1 (Version None)
Quarter: 2011Q4

REPORT INFORMATION
  Report Type: 
  Country: None (occurrence: None)
  Receive Date: 20111109
  Receipt Date: 20111101
  Transmission Date: 20120403
  Serious: Yes (Hospitalization)
  Sender: FDA-Public Use
  Company Number: FR-JNJFOC-20111100487

PATIENT
  Age: 70 Year
  Sex: Male

DRUGS (18)
  1. VFEND [Concomitant]
     Route: 065
     Dates: start: 20110808
  2. ANTINEOPLASTIC AGENTS [Concomitant]
     Indication: LUNG NEOPLASM MALIGNANT
     Route: 065
  3. VANCOMYCIN [Concomitant]
     Route: 065
     Dates: start: 20110824
  4. VANCOMYCIN [Concomitant]
     Route: 065
     Dates: start: 20110810, end: 20110821
  5. IMIPENEM/CILASTATIN [Concomitant]
     Route: 065
     Dates: start: 20110810
  6. BACTRIM [Suspect]
     Indication: PROPHYLAXIS
     Route: 048
     Dates: start: 20110501, end: 20110821
  7. LEVOFLOXACIN [Suspect]
     Indication: SUBCUTANEOUS ABSCESS
     Route: 048
     Dates: start: 20110810, end: 20110820
  8. VANCOMYCIN [Concomitant]
     Indication: RESPIRATORY DISTRESS
     Route: 065
     Dates: start: 20110810, end: 20110821
  9. ANTINEOPLASTIC AGENTS [Concomitant]
     Indication: ACUTE MYELOID LEUKAEMIA
     Route: 065
  10. VANCOMYCIN [Concomitant]
     Indication: SUBCUTANEOUS ABSCESS
     Route: 065
     Dates: start: 20110810, end: 20110821
  11. VANCOMYCIN [Concomitant]
     Route: 065
     Dates: start: 20110824
  12. LEVOFLOXACIN [Suspect]
     Route: 048
     Dates: start: 20110810, end: 20110820
  13. VFEND [Concomitant]
     Indication: SUBCUTANEOUS ABSCESS
     Route: 065
     Dates: start: 20110808
  14. LEVOFLOXACIN [Suspect]
     Indication: RESPIRATORY DISTRESS
     Route: 048
     Dates: start: 20110810, end: 20110820
  15. VANCOMYCIN [Concomitant]
     Route: 065
     Dates: start: 20110824
  16. IMIPENEM/CILASTATIN [Concomitant]
     Indication: SUBCUTANEOUS ABSCESS
     Route: 065
     Dates: start: 20110810
  17. VFEND [Concomitant]
     Indication: RESPIRATORY DISTRESS
     Route: 065
     Dates: start: 20110808
  18. IMIPENEM/CILASTATIN [Concomitant]
     Indication: RESPIRATORY DISTRESS
     Route: 065
     Dates: start: 20110810

REACTIONS (3)
  - TOXIC SKIN ERUPTION [None]
  - PRURITUS [None]
  - RASH MACULAR [None]
